FAERS Safety Report 20941216 (Version 2)
Quarter: 2023Q2

REPORT INFORMATION
  Report Type: Spontaneous
  Country: US (occurrence: US)
  Receive Date: 20220609
  Receipt Date: 20230613
  Transmission Date: 20230721
  Serious: No
  Sender: FDA-Public Use
  Company Number: US-RIGEL PHARMACEUTICALS, INC.-2022FOS000139

PATIENT
  Sex: Female
  Weight: 63.22 kg

DRUGS (1)
  1. TAVALISSE [Suspect]
     Active Substance: FOSTAMATINIB
     Indication: Immune thrombocytopenia
     Dosage: 150 MG, BID
     Route: 048
     Dates: start: 20190503

REACTIONS (7)
  - Cataract operation [Unknown]
  - Kidney infection [Unknown]
  - Malaise [Unknown]
  - Illness [Unknown]
  - Visual impairment [Unknown]
  - Urinary tract infection [Unknown]
  - Blood urine present [Unknown]
